FAERS Safety Report 8832187 (Version 1)
Quarter: 2012Q4

REPORT INFORMATION
  Report Type: 
  Country: US (occurrence: US)
  Receive Date: 20121009
  Receipt Date: 20121009
  Transmission Date: 20130627
  Serious: Yes (Death, Hospitalization, Disabling, Other)
  Sender: FDA-Public Use
  Company Number: US-009507513-1205USA00959

PATIENT

DRUGS (9)
  1. FOSAMAX [Suspect]
     Indication: OSTEOPENIA
     Dosage: 70 mg, qw
     Route: 048
     Dates: start: 20041011, end: 20080121
  2. FOSAMAX [Suspect]
     Indication: OSTEOPENIA
  3. FOSAMAX D [Suspect]
     Route: 048
     Dates: start: 2004, end: 20110601
  4. FOSAMAX [Suspect]
     Indication: OSTEOPENIA
     Dosage: 70 mg, qw
     Route: 048
     Dates: start: 20080411, end: 20080925
  5. FOSAMAX [Suspect]
     Indication: OSTEOPOROSIS
  6. ALENDRONATE SODIUM [Suspect]
     Indication: OSTEOPENIA
     Dosage: 70 mg, qw
     Route: 048
     Dates: start: 20081011, end: 20100322
  7. ALENDRONATE SODIUM [Suspect]
     Indication: OSTEOPOROSIS
  8. ALENDRONATE SODIUM [Suspect]
     Indication: OSTEOPENIA
     Dosage: 70 mg, qw
     Route: 048
     Dates: start: 20100420, end: 20110503
  9. ALENDRONATE SODIUM [Suspect]
     Indication: OSTEOPOROSIS

REACTIONS (74)
  - Femur fracture [Unknown]
  - Closed fracture manipulation [Unknown]
  - Death [Fatal]
  - Spinal osteoarthritis [Unknown]
  - Tendonitis [Unknown]
  - Fall [Unknown]
  - Bursitis [Not Recovered/Not Resolved]
  - Cough [Unknown]
  - Fall [Unknown]
  - Dyspnoea [Unknown]
  - Osteoarthritis [Recovering/Resolving]
  - Fall [Unknown]
  - Burns first degree [Unknown]
  - Laceration [Unknown]
  - Loss of consciousness [Unknown]
  - Exostosis [Unknown]
  - Chondrocalcinosis pyrophosphate [Unknown]
  - Fall [Unknown]
  - Cardiac failure congestive [Unknown]
  - Cardiomegaly [Unknown]
  - Pericardial effusion [Unknown]
  - Emphysema [Unknown]
  - Coronary artery disease [Unknown]
  - Pericardial drainage [Unknown]
  - Hearing impaired [Recovering/Resolving]
  - Bronchitis [Recovered/Resolved]
  - Hypoxia [Unknown]
  - Ear infection [Recovering/Resolving]
  - Drug ineffective [Unknown]
  - Abdominal pain [Unknown]
  - Flatulence [Unknown]
  - Cerumen impaction [Unknown]
  - Cardiac enzymes increased [Unknown]
  - Pulmonary fibrosis [Unknown]
  - Anaemia of chronic disease [Unknown]
  - Pneumonia [Not Recovered/Not Resolved]
  - Gastrointestinal motility disorder [Unknown]
  - Hiatus hernia [Unknown]
  - Gastrooesophageal reflux disease [Unknown]
  - Myocardial infarction [Unknown]
  - Cardiac failure congestive [Not Recovered/Not Resolved]
  - Brain natriuretic peptide increased [Not Recovered/Not Resolved]
  - Acute myocardial infarction [Unknown]
  - Ventricular tachycardia [Unknown]
  - Sinusitis [Unknown]
  - Mitral valve incompetence [Unknown]
  - Hypertension [Unknown]
  - Hypercholesterolaemia [Unknown]
  - Arteriosclerosis [Unknown]
  - Stroke in evolution [Unknown]
  - Coronary arterial stent insertion [Unknown]
  - Gravitational oedema [Unknown]
  - Deep vein thrombosis [Recovered/Resolved]
  - Dysphagia [Recovered/Resolved]
  - Asthma [Recovered/Resolved]
  - Adenoidectomy [Unknown]
  - Cholecystectomy [Unknown]
  - Dysphagia [Unknown]
  - Adverse drug reaction [Unknown]
  - Cardiac failure congestive [Unknown]
  - Acute respiratory failure [Unknown]
  - Renal failure acute [Unknown]
  - Pulmonary fibrosis [Unknown]
  - Coronary artery disease [Unknown]
  - Asthma [Unknown]
  - Cardiogenic shock [Unknown]
  - Tonsillectomy [Unknown]
  - Hyperlipidaemia [Unknown]
  - Urinary incontinence [Unknown]
  - Dementia [Unknown]
  - Cardiac failure congestive [Unknown]
  - Renal failure chronic [Unknown]
  - Obstructive airways disorder [Unknown]
  - Type 2 diabetes mellitus [Unknown]
